FAERS Safety Report 15465359 (Version 1)
Quarter: 2018Q4

REPORT INFORMATION
  Report Type: Spontaneous
  Country: US (occurrence: US)
  Receive Date: 20181004
  Receipt Date: 20181004
  Transmission Date: 20190204
  Serious: No
  Sender: FDA-Public Use
  Company Number: US-BIOGEN-2018BI00639273

PATIENT
  Sex: Female

DRUGS (1)
  1. TYSABRI [Suspect]
     Active Substance: NATALIZUMAB
     Indication: MULTIPLE SCLEROSIS
     Route: 065
     Dates: start: 20140606, end: 20171215

REACTIONS (4)
  - Hypoaesthesia oral [Recovered/Resolved]
  - Gait disturbance [Unknown]
  - Speech disorder [Recovered/Resolved]
  - Hemiparaesthesia [Recovered/Resolved]
